FAERS Safety Report 20192951 (Version 1)
Quarter: 2021Q4

REPORT INFORMATION
  Report Type: Spontaneous
  Country: US (occurrence: US)
  Receive Date: 20211216
  Receipt Date: 20211216
  Transmission Date: 20220304
  Serious: No
  Sender: FDA-Public Use
  Company Number: US-ENDO PHARMACEUTICALS INC-2020-002481

PATIENT
  Sex: Male

DRUGS (2)
  1. XIAFLEX [Suspect]
     Active Substance: COLLAGENASE CLOSTRIDIUM HISTOLYTICUM
     Indication: Peyronie^s disease
     Dosage: UNK UNKNOWN, UNKNOWN, CYCLE ONE, INJECTION ONE
     Route: 026
     Dates: start: 20200207
  2. XIAFLEX [Suspect]
     Active Substance: COLLAGENASE CLOSTRIDIUM HISTOLYTICUM
     Dosage: UNK UNKNOWN, UNKNOWN, CYCLE ONE, INJECTION TWO
     Route: 026
     Dates: start: 202002

REACTIONS (3)
  - Injection site bruising [Recovered/Resolved]
  - Penile contusion [Recovered/Resolved]
  - Drug ineffective [Unknown]
